FAERS Safety Report 7367355-X (Version None)
Quarter: 2011Q1

REPORT INFORMATION
  Report Type: 
  Country: None (occurrence: None)
  Receive Date: 20110322
  Receipt Date: 20110317
  Transmission Date: 20110831
  Serious: Yes (Other)
  Sender: FDA-Public Use
  Company Number: US-PFIZER INC-2011059285

PATIENT
  Sex: Male
  Weight: 76.644 kg

DRUGS (7)
  1. ADVIL CONGESTION RELIEF [Suspect]
     Indication: NASOPHARYNGITIS
     Dosage: 200/10 MG TABLET 2XPER DAY
     Route: 048
     Dates: start: 20110315, end: 20110316
  2. SYNTHROID [Concomitant]
     Indication: THYROID DISORDER
     Dosage: 7.7 MG, UNK
  3. PREDNISONE [Concomitant]
     Indication: WHITE BLOOD CELL COUNT DECREASED
     Dosage: 5 MG, UNK
  4. ROBITUSSIN COUGH AND CHEST CONGESTION DM [Suspect]
     Dosage: UNK
  5. ACETYLSALICYLIC ACID [Concomitant]
     Indication: CARDIOVASCULAR DISORDER
     Dosage: 81 MG, UNK
  6. ADVIL CONGESTION RELIEF [Suspect]
     Indication: HEADACHE
  7. ADVIL CONGESTION RELIEF [Suspect]
     Indication: NASAL CONGESTION

REACTIONS (2)
  - URINE COLOUR ABNORMAL [None]
  - DYSPNOEA [None]
